FAERS Safety Report 20865707 (Version 1)
Quarter: 2022Q2

REPORT INFORMATION
  Report Type: Other
  Country: ES (occurrence: None)
  Receive Date: 20220524
  Receipt Date: 20220524
  Transmission Date: 20220721
  Serious: Yes (Other)
  Sender: FDA-Public Use
  Company Number: ES-ROCHE-3101132

PATIENT
  Age: 66 Year
  Sex: Female

DRUGS (13)
  1. GANCICLOVIR SODIUM [Suspect]
     Active Substance: GANCICLOVIR SODIUM
     Indication: Hepatitis B
     Route: 065
  2. MYCOPHENOLATE MOFETIL [Suspect]
     Active Substance: MYCOPHENOLATE MOFETIL
     Indication: Prophylaxis against transplant rejection
     Route: 065
  3. LAMIVUDINE [Suspect]
     Active Substance: LAMIVUDINE
     Indication: Hepatitis B
     Route: 065
  4. SULFAMETHOXAZOLE\TRIMETHOPRIM [Suspect]
     Active Substance: SULFAMETHOXAZOLE\TRIMETHOPRIM
     Indication: Prophylaxis
     Route: 065
  5. IVERMECTIN [Suspect]
     Active Substance: IVERMECTIN
     Indication: Prophylaxis
     Route: 065
  6. NYSTATIN [Suspect]
     Active Substance: NYSTATIN
     Indication: Prophylaxis
     Route: 065
  7. ACYCLOVIR [Suspect]
     Active Substance: ACYCLOVIR
     Indication: Rash vesicular
     Route: 065
  8. ACYCLOVIR [Suspect]
     Active Substance: ACYCLOVIR
     Indication: Herpes virus infection
     Route: 051
  9. FOSCARNET [Suspect]
     Active Substance: FOSCARNET
     Indication: Herpes virus infection
     Route: 065
  10. TIGECYCLINE [Concomitant]
     Active Substance: TIGECYCLINE
  11. BASILIXIMAB [Concomitant]
     Active Substance: BASILIXIMAB
  12. CYCLOSPORINE [Concomitant]
     Active Substance: CYCLOSPORINE
     Indication: Immunosuppression
  13. EVEROLIMUS [Concomitant]
     Active Substance: EVEROLIMUS

REACTIONS (8)
  - Cellulitis [Unknown]
  - Thrombocytopenia [Unknown]
  - Herpes simplex hepatitis [Unknown]
  - Encephalopathy [Unknown]
  - Cytomegalovirus infection [Unknown]
  - Strongyloidiasis [Unknown]
  - Candida infection [Unknown]
  - Off label use [Unknown]
